FAERS Safety Report 4625049-5 (Version None)
Quarter: 2005Q2

REPORT INFORMATION
  Report Type: 
  Country: None (occurrence: None)
  Receive Date: 20050325
  Receipt Date: 20050126
  Transmission Date: 20051028
  Serious: No
  Sender: FDA-Public Use
  Company Number: US_0502112588

PATIENT
  Age: 77 Year
  Sex: Male
  Weight: 61 kg

DRUGS (15)
  1. FORTEO [Suspect]
     Indication: OSTEOPOROSIS
     Dosage: 20 UG DAY
     Dates: start: 20041101
  2. PLAVIX [Concomitant]
  3. ENBREL [Concomitant]
  4. METHOTREXATE [Concomitant]
  5. SINGULAIR (MONTELUKAST) [Concomitant]
  6. TOPROL-XL [Concomitant]
  7. VITAMIN B-12 [Concomitant]
  8. FOLIC ACID [Concomitant]
  9. SEREVENT [Concomitant]
  10. FLOVENT [Concomitant]
  11. ALBUTEROL W/IPRATROPIUM [Concomitant]
  12. CALTRATE (CALCIUM CARBONATE) [Concomitant]
  13. MULTI-VITAMIN [Concomitant]
  14. PONARIS [Concomitant]
  15. GABAPENTIN [Concomitant]

REACTIONS (1)
  - EPISTAXIS [None]
